FAERS Safety Report 6160467-8 (Version None)
Quarter: 2009Q2

REPORT INFORMATION
  Report Type: 
  Country: None (occurrence: None)
  Receive Date: 20090420
  Receipt Date: 20090415
  Transmission Date: 20091009
  Serious: Yes (Hospitalization, Other)
  Sender: FDA-Public Use
  Company Number: US-BAYER-200911097BCC

PATIENT
  Age: 29 Year
  Sex: Male

DRUGS (1)
  1. ALEVE (CAPLET) [Suspect]
     Indication: INTENTIONAL OVERDOSE
     Dosage: TOOK 50 ALEVE CAPLETS IN A 2 HOUR TIME FRAME
     Route: 048
     Dates: start: 20090407

REACTIONS (2)
  - DYSPEPSIA [None]
  - VOMITING [None]
